FAERS Safety Report 15776472 (Version 2)
Quarter: 2019Q1

REPORT INFORMATION
  Report Type: Spontaneous
  Country: PH (occurrence: PH)
  Receive Date: 20181231
  Receipt Date: 20190115
  Transmission Date: 20190417
  Serious: Yes (Hospitalization, Other)
  Sender: FDA-Public Use
  Company Number: PH-GLAXOSMITHKLINE-PH2018GSK233686

PATIENT
  Age: 72 Year
  Sex: Male
  Weight: 60 kg

DRUGS (3)
  1. SERETIDE [Suspect]
     Active Substance: FLUTICASONE PROPIONATE\SALMETEROL XINAFOATE
     Indication: CHRONIC OBSTRUCTIVE PULMONARY DISEASE
     Dosage: UNK UG, BID
     Route: 055
     Dates: start: 20120821, end: 20181227
  2. AMLODIPINE [Concomitant]
     Active Substance: AMLODIPINE BESYLATE
     Indication: HYPERTENSION
     Dosage: 5 MG, 1D
     Route: 048
     Dates: start: 20120104
  3. ZYKAST [Concomitant]
     Indication: RHINITIS ALLERGIC
     Dosage: UNK UNK, 1D
     Dates: start: 20170303

REACTIONS (10)
  - Pneumonia [Recovered/Resolved]
  - Condition aggravated [Unknown]
  - Oropharyngeal pain [Recovered/Resolved]
  - Productive cough [Recovered/Resolved]
  - Decreased appetite [Recovered/Resolved]
  - Wheezing [Recovered/Resolved]
  - Aortic arteriosclerosis [Unknown]
  - Dyspnoea [Recovered/Resolved]
  - Pyrexia [Recovered/Resolved]
  - Chronic obstructive pulmonary disease [Recovered/Resolved]

NARRATIVE: CASE EVENT DATE: 20181224
